FAERS Safety Report 8102796-4 (Version None)
Quarter: 2012Q1

REPORT INFORMATION
  Report Type: 
  Country: None (occurrence: None)
  Receive Date: 20120201
  Receipt Date: 20120118
  Transmission Date: 20120608
  Serious: Yes (Congenital Anomaly)
  Sender: FDA-Public Use
  Company Number: GB-MYLANLABS-2012S1001282

PATIENT
  Sex: Male

DRUGS (2)
  1. AZATHIOPRINE [Suspect]
     Route: 064
  2. ADALIMUMAB [Suspect]
     Route: 064

REACTIONS (2)
  - DEAFNESS NEUROSENSORY [None]
  - MATERNAL EXPOSURE DURING PREGNANCY [None]
